FAERS Safety Report 22121600 (Version 2)
Quarter: 2023Q1

REPORT INFORMATION
  Report Type: Report from Study
  Country: PE (occurrence: PE)
  Receive Date: 20230321
  Receipt Date: 20230327
  Transmission Date: 20230417
  Serious: Yes (Hospitalization)
  Sender: FDA-Public Use
  Company Number: PE-BAYER-2023A034849

PATIENT
  Sex: Male
  Weight: 81 kg

DRUGS (7)
  1. DAROLUTAMIDE [Suspect]
     Active Substance: DAROLUTAMIDE
     Indication: Hormone-dependent prostate cancer
     Dosage: 600 MG
     Route: 048
     Dates: start: 20220621, end: 20220915
  2. DAROLUTAMIDE [Suspect]
     Active Substance: DAROLUTAMIDE
     Indication: Hormone-dependent prostate cancer
     Dosage: 600 MG
     Route: 048
     Dates: start: 20220915, end: 20221220
  3. DAROLUTAMIDE [Suspect]
     Active Substance: DAROLUTAMIDE
     Indication: Hormone-dependent prostate cancer
     Dosage: 600 MG
     Route: 048
     Dates: start: 20221220
  4. IRBESARTAN [Concomitant]
     Active Substance: IRBESARTAN
     Dosage: 150 MG, BID
     Route: 048
     Dates: start: 202112
  5. ENOXAPARIN [Concomitant]
     Active Substance: ENOXAPARIN
     Dosage: 70 MG, BID
     Route: 058
     Dates: start: 20230315
  6. SPIRONOLACTONE [Concomitant]
     Active Substance: SPIRONOLACTONE
     Dosage: 25 MG, QD
     Route: 048
     Dates: start: 20230315
  7. CAPTOPRIL [Concomitant]
     Active Substance: CAPTOPRIL
     Dosage: 25 MG, QD
     Route: 048
     Dates: start: 20230315

REACTIONS (1)
  - Atrioventricular block complete [None]

NARRATIVE: CASE EVENT DATE: 20230314
